FAERS Safety Report 18435028 (Version 4)
Quarter: 2020Q4

REPORT INFORMATION
  Report Type: Report from Study
  Country: FI (occurrence: FI)
  Receive Date: 20201028
  Receipt Date: 20201125
  Transmission Date: 20210114
  Serious: Yes (Hospitalization, Other)
  Sender: FDA-Public Use
  Company Number: NVSC2020FI287873

PATIENT
  Age: 14 Year
  Sex: Male

DRUGS (5)
  1. ATROVENT [Concomitant]
     Active Substance: IPRATROPIUM BROMIDE
     Indication: PRODUCT USED FOR UNKNOWN INDICATION
     Dosage: UNK
     Dates: start: 20200429
  2. LEPONEX [Suspect]
     Active Substance: CLOZAPINE
     Indication: SCHIZOPHRENIA
     Dosage: 350 MG, QD
     Route: 065
     Dates: start: 20200401, end: 20200927
  3. PEGORION [Concomitant]
     Active Substance: POLYETHYLENE GLYCOL 4000
     Indication: PRODUCT USED FOR UNKNOWN INDICATION
     Dosage: 1 DF (1 TO 4 TIMES PER DAY)
     Route: 065
     Dates: start: 20200406
  4. OLANZAPINE. [Suspect]
     Active Substance: OLANZAPINE
     Indication: PSYCHOTIC SYMPTOM
     Dosage: UNK
     Route: 065
  5. LEPONEX [Suspect]
     Active Substance: CLOZAPINE
     Dosage: UNK
     Route: 065
     Dates: start: 20201020

REACTIONS (10)
  - C-reactive protein increased [Unknown]
  - Appendicitis [Unknown]
  - Off label use [Unknown]
  - Psychotic disorder [Unknown]
  - Abdominal abscess [Unknown]
  - Ileus paralytic [Unknown]
  - Abdominal pain [Unknown]
  - Peritonitis [Unknown]
  - Abdominal tenderness [Unknown]
  - Pyrexia [Unknown]

NARRATIVE: CASE EVENT DATE: 2020
